FAERS Safety Report 12683183 (Version 1)
Quarter: 2016Q3

REPORT INFORMATION
  Report Type: Spontaneous
  Country: US (occurrence: None)
  Receive Date: 20160824
  Receipt Date: 20160824
  Transmission Date: 20161109
  Serious: Yes (Disabling)
  Sender: FDA-Public Use
  Company Number: None

PATIENT
  Age: 5 Year
  Sex: Male
  Weight: 18.14 kg

DRUGS (1)
  1. NEOSPORIN WOUND CLEANSER [Suspect]
     Active Substance: BENZALKONIUM CHLORIDE
     Indication: SCRATCH
     Dosage: ONCE A DAY APPLIED TO A SURFACE, USUALLY THE SKIN
     Dates: start: 20160813, end: 20160815

REACTIONS (2)
  - Rash pustular [None]
  - Pain [None]

NARRATIVE: CASE EVENT DATE: 20160814
